FAERS Safety Report 12406197 (Version 1)
Quarter: 2016Q2

REPORT INFORMATION
  Report Type: Spontaneous
  Country: US (occurrence: US)
  Receive Date: 20160526
  Receipt Date: 20160526
  Transmission Date: 20160815
  Serious: No
  Sender: FDA-Public Use
  Company Number: US-ASTRAZENECA-2016SE52996

PATIENT
  Sex: Male
  Weight: 113.4 kg

DRUGS (3)
  1. LANTUS [Concomitant]
     Active Substance: INSULIN GLARGINE
     Route: 058
  2. BYDUREON [Suspect]
     Active Substance: EXENATIDE
     Route: 058
     Dates: start: 20160306
  3. NOVALOG [Concomitant]
     Dosage: INTERMITTENT
     Route: 058

REACTIONS (2)
  - Blood glucose increased [Unknown]
  - Off label use [Unknown]
